FAERS Safety Report 4886432-6 (Version None)
Quarter: 2006Q1

REPORT INFORMATION
  Report Type: 
  Country: None (occurrence: None)
  Receive Date: 20060120
  Receipt Date: 20051005
  Transmission Date: 20060701
  Serious: Yes (Hospitalization)
  Sender: FDA-Public Use
  Company Number: US-MERCK-0510USA04410

PATIENT
  Age: 63 Year
  Sex: Female
  Weight: 66 kg

DRUGS (6)
  1. VIOXX [Suspect]
     Indication: BACK PAIN
     Route: 048
     Dates: start: 19990101, end: 20030201
  2. NEURONTIN [Concomitant]
     Route: 065
  3. SOMA [Concomitant]
     Route: 065
  4. SYNTHROID [Concomitant]
     Route: 065
  5. DETROL [Concomitant]
     Route: 065
  6. DITROPAN [Concomitant]
     Route: 065

REACTIONS (7)
  - ANXIETY [None]
  - BACK INJURY [None]
  - DEEP VEIN THROMBOSIS [None]
  - DEPRESSION [None]
  - HYPERSENSITIVITY [None]
  - NECK INJURY [None]
  - SKIN LACERATION [None]
